FAERS Safety Report 6369843-1 (Version None)
Quarter: 2009Q3

REPORT INFORMATION
  Report Type: 
  Country: None (occurrence: None)
  Receive Date: 20090923
  Receipt Date: 20070521
  Transmission Date: 20100115
  Serious: Yes (Hospitalization)
  Sender: FDA-Public Use
  Company Number: US-ASTRAZENECA-2006UW11356

PATIENT
  Age: 365 Month
  Sex: Female
  Weight: 109.3 kg

DRUGS (7)
  1. SEROQUEL [Suspect]
     Indication: SLEEP DISORDER
     Route: 048
     Dates: start: 19970101
  2. SEROQUEL [Suspect]
     Indication: DEPRESSION
     Route: 048
     Dates: start: 19970101
  3. SEROQUEL [Suspect]
     Route: 048
     Dates: start: 20010823, end: 20021126
  4. SEROQUEL [Suspect]
     Route: 048
     Dates: start: 20010823, end: 20021126
  5. ZOLOFT [Concomitant]
  6. DEPAKOTE [Concomitant]
  7. XANAX [Concomitant]

REACTIONS (2)
  - DEPRESSION [None]
  - DIABETES MELLITUS [None]
